FAERS Safety Report 18023638 (Version 1)
Quarter: 2020Q3

REPORT INFORMATION
  Report Type: Spontaneous
  Country: AU (occurrence: AU)
  Receive Date: 20200714
  Receipt Date: 20200714
  Transmission Date: 20201103
  Serious: Yes (Other)
  Sender: FDA-Public Use
  Company Number: AU-GE HEALTHCARE LIFE SCIENCES-2020CSU002976

PATIENT

DRUGS (4)
  1. SOMAC [Concomitant]
     Active Substance: PANTOPRAZOLE SODIUM
     Indication: CHEST PAIN
     Dosage: UNK
     Route: 048
     Dates: start: 20200615
  2. SALBUTAMOL [Concomitant]
     Active Substance: ALBUTEROL
     Indication: ASTHMA
  3. OMNIPAQUE [Suspect]
     Active Substance: IOHEXOL
     Indication: COMPUTERISED TOMOGRAM THORAX
     Dosage: 50 ML, SINGLE
     Route: 042
     Dates: start: 20200709, end: 20200709
  4. OMNIPAQUE [Suspect]
     Active Substance: IOHEXOL
     Indication: CHEST PAIN

REACTIONS (2)
  - Sneezing [Recovered/Resolved]
  - Urticaria [Recovered/Resolved]

NARRATIVE: CASE EVENT DATE: 20200709
